FAERS Safety Report 7771872-8 (Version None)
Quarter: 2011Q3

REPORT INFORMATION
  Report Type: 
  Country: None (occurrence: None)
  Receive Date: 20110922
  Receipt Date: 20110209
  Transmission Date: 20111222
  Serious: No
  Sender: FDA-Public Use
  Company Number: US-ASTRAZENECA-2011SE07599

PATIENT
  Age: 50 Year
  Sex: Female
  Weight: 99.8 kg

DRUGS (9)
  1. FIORICET [Concomitant]
     Indication: MIGRAINE
  2. SEROQUEL [Suspect]
     Indication: SLEEP DISORDER
     Route: 048
     Dates: start: 20101025
  3. SEROQUEL [Suspect]
     Indication: DEPRESSION
     Route: 048
     Dates: start: 20101025
  4. EFFEXOR [Concomitant]
     Indication: DEPRESSION
  5. SEROQUEL [Suspect]
     Indication: POST-TRAUMATIC STRESS DISORDER
     Route: 048
     Dates: start: 20101025
  6. VITAMIN TAB [Concomitant]
  7. ESTRADIOL [Concomitant]
     Indication: HORMONE REPLACEMENT THERAPY
  8. VALIUM [Concomitant]
     Indication: ANXIETY
  9. MYCARDIA HCT [Concomitant]
     Indication: HYPERTENSION

REACTIONS (2)
  - INSOMNIA [None]
  - DRUG DOSE OMISSION [None]
